FAERS Safety Report 6476714-9 (Version None)
Quarter: 2009Q4

REPORT INFORMATION
  Report Type: 
  Country: None (occurrence: None)
  Receive Date: 20091207
  Receipt Date: 20091125
  Transmission Date: 20100525
  Serious: Yes (Death)
  Sender: FDA-Public Use
  Company Number: JP-NOVOPROD-277688

PATIENT
  Sex: Male

DRUGS (1)
  1. NOVOSEVEN [Suspect]
     Indication: HAEMOPHILIA A WITH ANTI FACTOR VIII
     Dosage: 4.8 MG, UNK
     Route: 042
     Dates: end: 20070322

REACTIONS (1)
  - CONCOMITANT DISEASE PROGRESSION [None]
